FAERS Safety Report 23075045 (Version 1)
Quarter: 2023Q4

REPORT INFORMATION
  Report Type: Spontaneous
  Country: US (occurrence: US)
  Receive Date: 20231017
  Receipt Date: 20231017
  Transmission Date: 20240110
  Serious: Yes (Other)
  Sender: FDA-Public Use
  Company Number: US-TEVA-2023-US-2935250

PATIENT
  Age: 15 Year
  Sex: Female

DRUGS (7)
  1. DOXYCYCLINE [Suspect]
     Active Substance: DOXYCYCLINE
     Indication: Dermatitis acneiform
     Dosage: 200 MILLIGRAM DAILY;
     Route: 065
  2. TRAMETINIB [Suspect]
     Active Substance: TRAMETINIB
     Indication: Posterior fossa syndrome
     Route: 065
  3. TRAMETINIB [Suspect]
     Active Substance: TRAMETINIB
     Indication: Astrocytoma, low grade
  4. CARBOPLATIN [Concomitant]
     Active Substance: CARBOPLATIN
     Indication: Posterior fossa syndrome
     Route: 065
  5. CARBOPLATIN [Concomitant]
     Active Substance: CARBOPLATIN
     Indication: Astrocytoma, low grade
  6. VINCRISTINE [Concomitant]
     Active Substance: VINCRISTINE
     Indication: Posterior fossa syndrome
     Route: 065
  7. VINCRISTINE [Concomitant]
     Active Substance: VINCRISTINE
     Indication: Astrocytoma, low grade

REACTIONS (5)
  - Dermatitis acneiform [Unknown]
  - Photosensitivity reaction [Recovered/Resolved]
  - Toxic skin eruption [Recovered/Resolved]
  - Paronychia [Unknown]
  - Eczema asteatotic [Unknown]
